FAERS Safety Report 8815610 (Version 1)
Quarter: 2012Q4

REPORT INFORMATION
  Report Type: 
  Country: US (occurrence: US)
  Receive Date: 20120928
  Receipt Date: 20120928
  Transmission Date: 20130627
  Serious: No
  Sender: FDA-Public Use
  Company Number: US-PFIZER INC-2012238327

PATIENT
  Age: 52 Year
  Sex: Female
  Weight: 104 kg

DRUGS (11)
  1. PREMARIN VAGINAL CREAM [Suspect]
     Indication: OESTROGEN DEFICIENCY
     Dosage: 0.5 g, daily
     Route: 067
     Dates: start: 20120906
  2. SOMA [Suspect]
     Indication: MUSCLE SPASMS
     Dosage: 350 mg, as needed
  3. METHADONE [Concomitant]
     Indication: PAIN
     Dosage: 20 mg, 3x/day
  4. VITAMIN D [Concomitant]
     Indication: VITAMIN D DEFICIENCY
     Dosage: 50000 IU, Weekly
  5. VALIUM [Concomitant]
     Indication: ANXIETY
     Dosage: 0.5 mg, 2x/day
     Dates: start: 2010
  6. VALIUM [Concomitant]
     Indication: PAIN
  7. LEVOTHYROXINE SODIUM [Concomitant]
     Indication: THYROID DISORDER
     Dosage: 150 ug, daily
  8. NEXIUM [Concomitant]
     Indication: GASTROOESOPHAGEAL REFLUX DISEASE
     Dosage: 40 mg, daily
  9. SANCTURA XR [Concomitant]
     Indication: URINARY INCONTINENCE
     Dosage: 60 mg, daily
  10. LASIX [Concomitant]
     Indication: FLUID RETENTION
     Dosage: 40 mg, daily
  11. WELLBUTRIN SR [Concomitant]
     Indication: DEPRESSION
     Dosage: 150 mg, 2x/day

REACTIONS (3)
  - Product quality issue [Unknown]
  - Poor quality drug administered [Unknown]
  - Somnolence [Unknown]
